FAERS Safety Report 9447764 (Version 2)
Quarter: 2013Q3

REPORT INFORMATION
  Report Type: Spontaneous
  Country: US (occurrence: US)
  Receive Date: 20130808
  Receipt Date: 20130904
  Transmission Date: 20140515
  Serious: No
  Sender: FDA-Public Use
  Company Number: US-009507513-1308USA002108

PATIENT
  Age: 14 Year
  Sex: Male

DRUGS (2)
  1. ASMANEX TWISTHALER [Suspect]
     Indication: ASTHMA
     Dosage: UNK, QD, FREQUENCY 1 INHALATION DAILY
     Route: 055
     Dates: start: 201307
  2. VENTOLIN (ALBUTEROL) [Concomitant]
     Dosage: UNK

REACTIONS (3)
  - Nervousness [Not Recovered/Not Resolved]
  - Drug dose omission [Unknown]
  - Product quality issue [Unknown]
